FAERS Safety Report 15304994 (Version 1)
Quarter: 2018Q3

REPORT INFORMATION
  Report Type: Spontaneous
  Country: US (occurrence: US)
  Receive Date: 20180810
  Receipt Date: 20180810
  Transmission Date: 20181010
  Serious: Yes (Hospitalization)
  Sender: FDA-Public Use
  Company Number: None

PATIENT
  Age: 11 Month
  Sex: Male

DRUGS (8)
  1. VIGABATRIN. [Suspect]
     Active Substance: VIGABATRIN
     Indication: EPILEPSY
     Dosage: ?          OTHER ROUTE:G?TUBE?
     Dates: start: 20180607
  2. KEPPRA [Concomitant]
     Active Substance: LEVETIRACETAM
  3. VIGABATRIN. [Suspect]
     Active Substance: VIGABATRIN
     Indication: MUSCLE SPASMS
     Dosage: ?          OTHER ROUTE:G?TUBE?
     Dates: start: 20180607
  4. BACLOFEN. [Concomitant]
     Active Substance: BACLOFEN
  5. DIAZEPAM. [Concomitant]
     Active Substance: DIAZEPAM
  6. RANITIDINE. [Concomitant]
     Active Substance: RANITIDINE
  7. OXCARBAZEPIN [Concomitant]
     Active Substance: OXCARBAZEPINE
  8. PRILOSEC [Concomitant]
     Active Substance: OMEPRAZOLE MAGNESIUM

REACTIONS (4)
  - Acute respiratory failure [None]
  - Enterovirus infection [None]
  - Rhinovirus infection [None]
  - Bronchiolitis [None]

NARRATIVE: CASE EVENT DATE: 20180731
